FAERS Safety Report 7715473-6 (Version None)
Quarter: 2011Q3

REPORT INFORMATION
  Report Type: 
  Country: None (occurrence: None)
  Receive Date: 20110810
  Receipt Date: 20110425
  Transmission Date: 20111222
  Serious: Yes (Other)
  Sender: FDA-Public Use
  Company Number: 1000019910

PATIENT
  Age: 56 Year
  Sex: Female
  Weight: 82.1 kg

DRUGS (11)
  1. SEROQUEL XR [Concomitant]
  2. PRAVASTATIN (PRAVASTATIN) (40 MILLIGRAM, TABLETS) (PRAVASTATIN) [Concomitant]
  3. ZYRTEC (CETIRIZINE) (TABLETS) (CETIRIZINE) [Concomitant]
  4. SAVELLA [Suspect]
     Indication: FIBROMYALGIA
     Dosage: 150 MG (75 MG, 2 IN 1 D), ORAL
     Route: 048
     Dates: start: 20100927, end: 20110101
  5. SAVELLA [Suspect]
     Indication: FIBROMYALGIA
     Dosage: SEE IMAGE
     Route: 048
  6. SAVELLA [Suspect]
     Indication: FIBROMYALGIA
     Dosage: SEE IMAGE
     Route: 048
  7. SAVELLA [Suspect]
     Indication: FIBROMYALGIA
     Dosage: SEE IMAGE
     Route: 048
     Dates: start: 20100701, end: 20100701
  8. SAVELLA [Suspect]
     Indication: FIBROMYALGIA
     Dosage: 100 MG (50 MG, 2 IN 1 D), ORAL
     Route: 048
     Dates: start: 20110101, end: 20110404
  9. CYCLOBENZAPRINE (CYCLOBENZAPRINE) (10 MILLIGRAM, TABLETS) (CYCLOBENZAP [Concomitant]
  10. SULFASALAZINE (SULFASALAZINE) (SULFASALAZINE) [Concomitant]
  11. XANAX [Concomitant]

REACTIONS (6)
  - ANXIETY [None]
  - MOOD SWINGS [None]
  - MEMORY IMPAIRMENT [None]
  - SUICIDAL IDEATION [None]
  - DEPRESSION [None]
  - CONFUSIONAL STATE [None]
